FAERS Safety Report 19283758 (Version 2)
Quarter: 2021Q3

REPORT INFORMATION
  Report Type: Report from Study
  Country: None (occurrence: US)
  Receive Date: 20210520
  Receipt Date: 20210719
  Transmission Date: 20211014
  Serious: Yes (Other)
  Sender: FDA-Public Use
  Company Number: US-ABBVIE-21K-163-3910701-00

PATIENT
  Age: 39 Year
  Sex: Female
  Weight: 52.66 kg

DRUGS (1)
  1. SKYRIZI [Suspect]
     Active Substance: RISANKIZUMAB-RZAA
     Indication: PSORIASIS
     Dosage: 2 SHOTS
     Route: 058

REACTIONS (5)
  - Vision blurred [Unknown]
  - Deafness unilateral [Recovering/Resolving]
  - Intracranial aneurysm [Unknown]
  - Migraine [Unknown]
  - Blood calcium decreased [Unknown]

NARRATIVE: CASE EVENT DATE: 202103
